FAERS Safety Report 9592884 (Version 2)
Quarter: 2013Q4

REPORT INFORMATION
  Report Type: Spontaneous
  Country: JP (occurrence: JP)
  Receive Date: 20131004
  Receipt Date: 20131004
  Transmission Date: 20140711
  Serious: Yes (Other)
  Sender: FDA-Public Use
  Company Number: JP-EISAI INC-E3810-06701-SPO-JP

PATIENT
  Age: 53 Year
  Sex: Female

DRUGS (1)
  1. PARIET (RABEPRAZOLE) [Suspect]
     Indication: GASTROOESOPHAGEAL REFLUX DISEASE
     Route: 048
     Dates: start: 200703, end: 20130924

REACTIONS (1)
  - Gastric polyps [Not Recovered/Not Resolved]
